FAERS Safety Report 20647659 (Version 1)
Quarter: 2022Q1

REPORT INFORMATION
  Report Type: Spontaneous
  Country: US (occurrence: None)
  Receive Date: 20220328
  Receipt Date: 20220328
  Transmission Date: 20220424
  Serious: Yes (Hospitalization)
  Sender: FDA-Public Use
  Company Number: None

PATIENT
  Age: 70 Year
  Sex: Male
  Weight: 93 kg

DRUGS (9)
  1. TECARTUS [Suspect]
     Active Substance: BREXUCABTAGENE AUTOLEUCEL
     Indication: Mantle cell lymphoma
     Dosage: 68 ML ONCE ?
     Route: 042
     Dates: start: 20211210, end: 20211210
  2. ACTEMRA [Concomitant]
     Active Substance: TOCILIZUMAB
     Dates: start: 20211214, end: 20211217
  3. anakinra (Kineret) subcutaneous injection [Concomitant]
     Dates: start: 20211216, end: 20211216
  4. dexAMETHasone (Decadron) injection [Concomitant]
     Dates: start: 20211215, end: 20211226
  5. ZOSYN [Concomitant]
     Active Substance: PIPERACILLIN SODIUM\TAZOBACTAM SODIUM
     Dates: start: 20211214, end: 20211216
  6. VANCOMYCIN [Concomitant]
     Active Substance: VANCOMYCIN
     Dates: start: 20211217, end: 20211218
  7. norepinephrine 4 mg/250 mL (0.016 mg/mL) NS [Concomitant]
     Dates: start: 20211217, end: 20211218
  8. acyclovir (Zovirax) table [Concomitant]
     Dates: start: 20211211, end: 20220328
  9. amiodarone (Nexterone) [Concomitant]
     Dates: start: 20211217, end: 20211218

REACTIONS (2)
  - Cytokine release syndrome [None]
  - Infusion related reaction [None]

NARRATIVE: CASE EVENT DATE: 20211217
